FAERS Safety Report 19799165 (Version 1)
Quarter: 2021Q3

REPORT INFORMATION
  Report Type: Report from Study
  Country: JP (occurrence: JP)
  Receive Date: 20210907
  Receipt Date: 20210907
  Transmission Date: 20211014
  Serious: Yes (Death, Hospitalization, Other)
  Sender: FDA-Public Use
  Company Number: JP-KYOWAKIRIN-2021AKK014839

PATIENT

DRUGS (31)
  1. MELOXICAM. [Concomitant]
     Active Substance: MELOXICAM
     Indication: PROPHYLAXIS
     Dosage: UNK
     Route: 048
  2. FUROSEMIDE. [Concomitant]
     Active Substance: FUROSEMIDE
     Indication: PROPHYLAXIS
     Dosage: UNK
     Route: 065
     Dates: start: 20180312
  3. DEXART [Concomitant]
     Active Substance: DEXAMETHASONE SODIUM PHOSPHATE
     Indication: PROPHYLAXIS
     Dosage: 6.6 MG
     Route: 065
     Dates: start: 20180312, end: 20180312
  4. LOCHOL [FLUVASTATIN SODIUM] [Concomitant]
     Dosage: UNK
     Route: 048
  5. GASCON [DIMETICONE] [Concomitant]
     Indication: PROPHYLAXIS
     Dosage: UNK
     Route: 048
  6. MOGAMULIZUMAB [Suspect]
     Active Substance: MOGAMULIZUMAB
     Indication: ADULT T-CELL LYMPHOMA/LEUKAEMIA
     Dosage: 1 MG/KG
     Route: 041
     Dates: start: 20180312, end: 20180312
  7. MAGNESIUM OXIDE. [Concomitant]
     Active Substance: MAGNESIUM OXIDE
     Indication: PROPHYLAXIS
     Dosage: UNK
     Route: 048
  8. MIYA?BM [Concomitant]
     Active Substance: CLOSTRIDIUM BUTYRICUM SPORES STRAIN M-55
     Indication: PROPHYLAXIS
     Dosage: UNK
     Route: 048
  9. WARFARIN [WARFARIN POTASSIUM] [Concomitant]
     Active Substance: WARFARIN POTASSIUM
     Indication: PROPHYLAXIS
     Dosage: UNK
     Route: 048
  10. ADONA [CARBAZOCHROME SODIUM SULFONATE] [Concomitant]
     Active Substance: CARBAZOCHROME SODIUM SULFONATE
     Indication: MELAENA
     Dosage: UNK
     Route: 065
     Dates: start: 20180318, end: 20180325
  11. MAXIPIME [Concomitant]
     Active Substance: CEFEPIME HYDROCHLORIDE
     Indication: FEBRILE NEUTROPENIA
     Dosage: UNK
     Route: 065
     Dates: start: 20180324, end: 20180330
  12. FLUCONAZOLE. [Concomitant]
     Active Substance: FLUCONAZOLE
     Indication: INFECTION PROPHYLAXIS
     Dosage: UNK
     Route: 048
     Dates: start: 20180303
  13. SULBACILLIN [Concomitant]
     Active Substance: AMPICILLIN SODIUM\SULBACTAM SODIUM
     Indication: PYREXIA
     Dosage: UNK
     Route: 042
     Dates: start: 20180324, end: 20180330
  14. DEXCHLORPHENIRAMINE MALEATE. [Concomitant]
     Active Substance: DEXCHLORPHENIRAMINE MALEATE
     Indication: PROPHYLAXIS
     Dosage: UNK
     Route: 048
     Dates: start: 20180312, end: 20180312
  15. LOXOPROFEN [LOXOPROFEN SODIUM] [Concomitant]
     Active Substance: LOXOPROFEN SODIUM
     Indication: PYREXIA
     Dosage: UNK
     Route: 048
     Dates: start: 20180326, end: 20180327
  16. BAYASPIRIN [Concomitant]
     Active Substance: ASPIRIN
     Indication: PROPHYLAXIS
     Dosage: UNK
     Route: 048
  17. REBAMIPIDE [Concomitant]
     Active Substance: REBAMIPIDE
     Indication: MELAENA
     Dosage: UNK
     Route: 048
     Dates: start: 20180318
  18. ELNEOPA NO.2 [Concomitant]
     Active Substance: AMINO ACIDS\DEXTROSE\ELECTROLYTES NOS\MINERALS\VITAMINS
     Indication: MELAENA
     Dosage: UNK
     Route: 065
     Dates: start: 20180318, end: 20180325
  19. TAKEPRON [Concomitant]
     Active Substance: LANSOPRAZOLE
     Indication: MELAENA
     Dosage: UNK
     Route: 042
     Dates: start: 20180318, end: 20180325
  20. DAIPHEN [Concomitant]
     Active Substance: SULFAMETHOXAZOLE\TRIMETHOPRIM
     Indication: INFECTION PROPHYLAXIS
     Dosage: UNK
     Route: 048
     Dates: start: 20160720
  21. GRANISETRON [GRANISETRON HYDROCHLORIDE] [Concomitant]
     Active Substance: GRANISETRON HYDROCHLORIDE
     Indication: PROPHYLAXIS
     Dosage: UNK
     Route: 041
     Dates: start: 20180313, end: 20180318
  22. UBIDECARENONE. [Concomitant]
     Active Substance: UBIDECARENONE
     Dosage: UNK
     Route: 048
  23. RABEPRAZOLE NA [Concomitant]
     Active Substance: RABEPRAZOLE SODIUM
     Indication: PROPHYLAXIS
     Dosage: UNK
     Route: 048
  24. ALOSENN [ACHILLEA MILLEFOLIUM;RUBIA TINCTORUM ROOT TINCTURE;SENNA ALEX [Concomitant]
     Active Substance: ACHILLEA MILLEFOLIUM\RUBIA TINCTURE\SENNA FRUIT EXTRACT\SENNA LEAF\TARAXACUM OFFICINALE
     Indication: PROPHYLAXIS
     Dosage: UNK
     Route: 048
  25. BENIDIPINE HYDROCHLORIDE [Concomitant]
     Active Substance: BENIDIPINE HYDROCHLORIDE
     Dosage: UNK
     Route: 048
  26. ISCOTIN [Concomitant]
     Active Substance: ISONIAZID
     Indication: INFECTION PROPHYLAXIS
     Dosage: UNK
     Route: 048
     Dates: start: 20180312
  27. ZYPREXA [Concomitant]
     Active Substance: OLANZAPINE
     Indication: PROPHYLAXIS
     Dosage: UNK
     Route: 048
  28. FEBURIC [Concomitant]
     Active Substance: FEBUXOSTAT
     Dosage: UNK
     Route: 048
  29. ROZEREM [Concomitant]
     Active Substance: RAMELTEON
     Indication: PROPHYLAXIS
     Dosage: UNK
     Route: 048
  30. FILGRASTIM BS [FILGRASTIM BIOSIMILAR 1] [Concomitant]
     Active Substance: FILGRASTIM
     Indication: MYELOSUPPRESSION
     Dosage: UNK
     Route: 065
     Dates: start: 20180322, end: 20180328
  31. LOPERAMIDE [LOPERAMIDE HYDROCHLORIDE] [Concomitant]
     Active Substance: LOPERAMIDE HYDROCHLORIDE
     Indication: DIARRHOEA
     Dosage: UNK
     Route: 048
     Dates: start: 20180327, end: 20180420

REACTIONS (7)
  - Melaena [Recovered/Resolved]
  - Pneumonia [Recovering/Resolving]
  - Pyrexia [Not Recovered/Not Resolved]
  - Febrile neutropenia [Recovered/Resolved]
  - Diarrhoea [Recovering/Resolving]
  - Myelosuppression [Recovered/Resolved]
  - Death [Fatal]

NARRATIVE: CASE EVENT DATE: 20180318
